FAERS Safety Report 13135092 (Version 1)
Quarter: 2017Q1

REPORT INFORMATION
  Report Type: Other
  Country: US (occurrence: US)
  Receive Date: 20170120
  Receipt Date: 20170120
  Transmission Date: 20170428
  Serious: Yes (Life-Threatening, Hospitalization, Other)
  Sender: FDA-Public Use
  Company Number: US-WARNER CHILCOTT, LLC-1062230

PATIENT
  Age: 37 Year
  Sex: Female

DRUGS (14)
  1. SENOKOT [Concomitant]
     Active Substance: SENNOSIDES
  2. LO LOESTRIN FE [Suspect]
     Active Substance: ETHINYL ESTRADIOL\NORETHINDRONE ACETATE
     Indication: CHEMICAL CONTRACEPTION
     Route: 048
     Dates: start: 201306, end: 201503
  3. CYMBALTA [Concomitant]
     Active Substance: DULOXETINE HYDROCHLORIDE
  4. DITROPAN [Concomitant]
     Active Substance: OXYBUTYNIN CHLORIDE
  5. PERCOCET [Concomitant]
     Active Substance: ACETAMINOPHEN\OXYCODONE HYDROCHLORIDE
  6. TOPAMAX [Concomitant]
     Active Substance: TOPIRAMATE
  7. PROTONIX [Concomitant]
     Active Substance: PANTOPRAZOLE SODIUM
  8. NEXIUM [Concomitant]
     Active Substance: ESOMEPRAZOLE MAGNESIUM
  9. VITAMIN D [Concomitant]
     Active Substance: CHOLECALCIFEROL
  10. TYLENOL [Concomitant]
     Active Substance: ACETAMINOPHEN
  11. ADDERALL [Concomitant]
     Active Substance: AMPHETAMINE ASPARTATE\AMPHETAMINE SULFATE\DEXTROAMPHETAMINE SACCHARATE\DEXTROAMPHETAMINE SULFATE
  12. CARBAMAZEPINE. [Concomitant]
     Active Substance: CARBAMAZEPINE
  13. DILAUDID [Concomitant]
     Active Substance: HYDROMORPHONE HYDROCHLORIDE
  14. ZOFRAN [Concomitant]
     Active Substance: ONDANSETRON HYDROCHLORIDE

REACTIONS (15)
  - Diplopia [Unknown]
  - Nystagmus [Unknown]
  - Nausea [Unknown]
  - Cerebrovascular accident [Unknown]
  - Trigeminal neuralgia [Unknown]
  - Dizziness [Unknown]
  - Vertebral artery dissection [Unknown]
  - Headache [Unknown]
  - Hypoaesthesia [Unknown]
  - Dysaesthesia [Unknown]
  - Lateral medullary syndrome [Unknown]
  - Ataxia [Unknown]
  - Neck pain [Unknown]
  - Coordination abnormal [Unknown]
  - Vomiting [Unknown]

NARRATIVE: CASE EVENT DATE: 201503
